FAERS Safety Report 4407057-2 (Version None)
Quarter: 2004Q3

REPORT INFORMATION
  Report Type: 
  Country: None (occurrence: None)
  Receive Date: 20040721
  Receipt Date: 20040713
  Transmission Date: 20050211
  Serious: Yes (Death, Hospitalization)
  Sender: FDA-Public Use
  Company Number: A-CH2004-06838

PATIENT
  Age: 40 Year
  Sex: Female

DRUGS (15)
  1. TRACLEER [Suspect]
     Indication: PULMONARY HYPERTENSION
     Dates: start: 20030501, end: 20040501
  2. MINITRAN (GLYCERYL TRINITRATE) [Concomitant]
  3. APOCARD (FLECAINIDE ACETATE) [Concomitant]
  4. FUROSEMIDE [Concomitant]
  5. AMERIDE (AMILORIDE HYDROCHLORIDE, HYDROCHLOROTHIAZIDE) [Concomitant]
  6. TRAMADOL HCL [Concomitant]
  7. ADIRO (ACETYLSALICYLIC ACID) [Concomitant]
  8. ZASTEN (KETOTIFEN FUMARATE) [Concomitant]
  9. ENALAPRIL MALEATE [Concomitant]
  10. LORAZEPAM [Concomitant]
  11. LOSEC (OMEPRAZOLE) [Concomitant]
  12. KONAKION [Concomitant]
  13. VENOFER [Concomitant]
  14. ANAGASTRA (PANTOPRAZOLE SODIUM) [Concomitant]
  15. ARANES (SERTRALINE HYDROCHLORIDE) [Concomitant]

REACTIONS (14)
  - ABDOMINAL INFECTION [None]
  - ANURIA [None]
  - ASCITES [None]
  - DYSPNOEA EXACERBATED [None]
  - FLUID RETENTION [None]
  - GASTROINTESTINAL HAEMORRHAGE [None]
  - GENERALISED OEDEMA [None]
  - IRON DEFICIENCY ANAEMIA [None]
  - LOWER RESPIRATORY TRACT INFECTION [None]
  - OEDEMA [None]
  - PLEURAL EFFUSION [None]
  - PULMONARY HYPERTENSION [None]
  - RENAL FAILURE ACUTE [None]
  - TELANGIECTASIA [None]
